FAERS Safety Report 12628658 (Version 1)
Quarter: 2016Q3

REPORT INFORMATION
  Report Type: Spontaneous
  Country: US (occurrence: US)
  Receive Date: 20160808
  Receipt Date: 20160808
  Transmission Date: 20161109
  Serious: No
  Sender: FDA-Public Use
  Company Number: US-JAZZ-2016-US-004440

PATIENT
  Sex: Female

DRUGS (21)
  1. NEXIUM [Concomitant]
     Active Substance: ESOMEPRAZOLE MAGNESIUM
  2. TRAMADOL HCL [Concomitant]
     Active Substance: TRAMADOL HYDROCHLORIDE
  3. XYREM [Suspect]
     Active Substance: SODIUM OXYBATE
     Dosage: DOSE ADJUSTMENTS
     Route: 048
  4. ROZEREM [Concomitant]
     Active Substance: RAMELTEON
  5. XYREM [Suspect]
     Active Substance: SODIUM OXYBATE
     Dosage: 4.5 G, BID
     Route: 048
     Dates: start: 201311
  6. METOCLOPRAMIDE. [Concomitant]
     Active Substance: METOCLOPRAMIDE
  7. ALPRAZOLAM. [Concomitant]
     Active Substance: ALPRAZOLAM
  8. PRIMIDONE. [Concomitant]
     Active Substance: PRIMIDONE
  9. VITAMINS [Concomitant]
     Active Substance: VITAMINS
  10. FLONASE [Concomitant]
     Active Substance: FLUTICASONE PROPIONATE
  11. BENTYL [Concomitant]
     Active Substance: DICYCLOMINE HYDROCHLORIDE
  12. HORIZANT ER [Concomitant]
  13. MIDODRINE HCL [Concomitant]
     Active Substance: MIDODRINE HYDROCHLORIDE
  14. NORTRIPTYLINE HCL [Concomitant]
     Active Substance: NORTRIPTYLINE HYDROCHLORIDE
  15. ARCAPTA NEOHALER [Concomitant]
     Active Substance: INDACATEROL MALEATE
  16. PROVIGIL [Concomitant]
     Active Substance: MODAFINIL
  17. XYREM [Suspect]
     Active Substance: SODIUM OXYBATE
     Indication: NARCOLEPSY
     Dosage: 2.25 G, BID
     Route: 048
     Dates: start: 200903, end: 200904
  18. CYANOCOBALAMINE [Concomitant]
     Active Substance: CYANOCOBALAMIN
  19. PROAIR HFA [Concomitant]
     Active Substance: ALBUTEROL SULFATE
  20. PROPRANOLOL ER [Concomitant]
  21. TOPIRAMATE. [Concomitant]
     Active Substance: TOPIRAMATE

REACTIONS (1)
  - Bronchitis [Not Recovered/Not Resolved]
